FAERS Safety Report 5706680-2 (Version None)
Quarter: 2008Q2

REPORT INFORMATION
  Report Type: 
  Country: None (occurrence: None)
  Receive Date: 20080415
  Receipt Date: 20080415
  Transmission Date: 20081010
  Serious: Yes (Other)
  Sender: FDA-Public Use
  Company Number: None

PATIENT
  Sex: Female
  Weight: 76.6579 kg

DRUGS (2)
  1. ROCEPHIN [Suspect]
     Indication: ACUTE SINUSITIS
     Dosage: 1 GM - IM
     Route: 030
     Dates: start: 20080409
  2. ROCEPHIN [Suspect]
     Indication: BRONCHOPNEUMONIA
     Dosage: 1 GM - IM
     Route: 030
     Dates: start: 20080409

REACTIONS (4)
  - CHEST PAIN [None]
  - DIZZINESS [None]
  - DYSPNOEA [None]
  - FEELING ABNORMAL [None]
